FAERS Safety Report 7595137-2 (Version None)
Quarter: 2011Q2

REPORT INFORMATION
  Report Type: 
  Country: None (occurrence: None)
  Receive Date: 20110620
  Receipt Date: 20110412
  Transmission Date: 20111010
  Serious: Yes (Hospitalization)
  Sender: FDA-Public Use
  Company Number: UTC-005984

PATIENT
  Age: 81 Year
  Sex: Male
  Weight: 93.18 kg

DRUGS (2)
  1. REVATIO [Concomitant]
  2. TYVASO [Suspect]
     Indication: PULMONARY ARTERIAL HYPERTENSION
     Dosage: 54 MCG, INHALATION
     Route: 055
     Dates: start: 20100603

REACTIONS (2)
  - POLYP [None]
  - SYNCOPE [None]
